FAERS Safety Report 7932384-1 (Version None)
Quarter: 2011Q4

REPORT INFORMATION
  Report Type: 
  Country: None (occurrence: None)
  Receive Date: 20111122
  Receipt Date: 20111115
  Transmission Date: 20120403
  Serious: Yes (Other)
  Sender: FDA-Public Use
  Company Number: DE-BRISTOL-MYERS SQUIBB COMPANY-16230997

PATIENT
  Age: 54 Year
  Sex: Male
  Weight: 113 kg

DRUGS (4)
  1. ONGLYZA [Suspect]
     Indication: DIABETES MELLITUS
     Route: 048
     Dates: start: 20101103, end: 20111028
  2. METFORMIN HCL [Concomitant]
     Indication: DIABETES MELLITUS
     Dosage: 1 DF: 1000 UNIT NOS
     Route: 048
     Dates: start: 20091120
  3. FLUPIRTINE MALEATE [Concomitant]
     Indication: BACK PAIN
     Route: 048
  4. AMLODIPINE BESYLATE AND OLMESARTAN MEDOXOMIL [Concomitant]
     Indication: HYPERTENSION
     Dosage: 40/5 MG 1X1
     Route: 048
     Dates: start: 20091120

REACTIONS (1)
  - TRANSAMINASES INCREASED [None]
